FAERS Safety Report 25214727 (Version 1)
Quarter: 2025Q2

REPORT INFORMATION
  Report Type: Spontaneous
  Country: US (occurrence: None)
  Receive Date: 20250418
  Receipt Date: 20250418
  Transmission Date: 20250717
  Serious: Yes (Hospitalization, Disabling)
  Sender: FDA-CTU
  Company Number: None

PATIENT
  Age: 40 Year
  Sex: Female
  Weight: 76.5 kg

DRUGS (6)
  1. CHANTIX [Suspect]
     Active Substance: VARENICLINE TARTRATE
     Indication: Smoking cessation therapy
     Dates: start: 20090120, end: 20090127
  2. DEPAKOTE [Concomitant]
     Active Substance: DIVALPROEX SODIUM
  3. QUIETIPIN [Concomitant]
  4. BLOOD PRESSURE MED [Concomitant]
  5. VITAMIN D NOS [Concomitant]
     Active Substance: CHOLECALCIFEROL\ERGOCALCIFEROL
  6. ZINC [Concomitant]
     Active Substance: ZINC

REACTIONS (2)
  - Psychotic disorder [None]
  - Cerebral disorder [None]

NARRATIVE: CASE EVENT DATE: 20090120
